FAERS Safety Report 9154374 (Version 1)
Quarter: 2013Q1

REPORT INFORMATION
  Report Type: Report from Study
  Country: US (occurrence: US)
  Receive Date: 20130311
  Receipt Date: 20130311
  Transmission Date: 20140127
  Serious: No
  Sender: FDA-Public Use
  Company Number: US-ABBOTT-12P-163-1009696-00

PATIENT
  Sex: Female

DRUGS (1)
  1. LUPRON DEPOT [Suspect]
     Indication: ENDOMETRIOSIS
     Dates: start: 20121012

REACTIONS (9)
  - Back pain [Unknown]
  - Fatigue [Unknown]
  - Gait disturbance [Unknown]
  - Local swelling [Unknown]
  - Hyperphagia [Unknown]
  - Weight increased [Unknown]
  - Dysarthria [Unknown]
  - Disturbance in attention [Unknown]
  - Amnesia [Unknown]
